FAERS Safety Report 11190266 (Version 2)
Quarter: 2015Q3

REPORT INFORMATION
  Report Type: Spontaneous
  Country: US (occurrence: US)
  Receive Date: 20150615
  Receipt Date: 20150722
  Transmission Date: 20151125
  Serious: Yes (Hospitalization)
  Sender: FDA-Public Use
  Company Number: US-UNITED THERAPEUTICS-UNT-2015-004274

PATIENT
  Sex: Male
  Weight: 122.45 kg

DRUGS (3)
  1. REMODULIN [Suspect]
     Active Substance: TREPROSTINIL
     Dosage: 0.045 ?G/KG, CONTINUING
     Route: 041
  2. REVATIO [Concomitant]
     Active Substance: SILDENAFIL CITRATE
     Indication: PRODUCT USED FOR UNKNOWN INDICATION
  3. REMODULIN [Suspect]
     Active Substance: TREPROSTINIL
     Indication: PULMONARY HYPERTENSION
     Dosage: 0.045 ?G/KG, CONTINUING
     Route: 041
     Dates: start: 20140110

REACTIONS (8)
  - Nasopharyngitis [Unknown]
  - Night sweats [Unknown]
  - Injection site infection [Unknown]
  - Injection site erythema [Unknown]
  - Cough [Unknown]
  - Feeling hot [Unknown]
  - Device related infection [Unknown]
  - Injection site pain [Unknown]
